FAERS Safety Report 9293565 (Version 1)
Quarter: 2013Q2

REPORT INFORMATION
  Report Type: Report from Study
  Country: ZA (occurrence: ZA)
  Receive Date: 20130516
  Receipt Date: 20130516
  Transmission Date: 20140414
  Serious: Yes (Hospitalization)
  Sender: FDA-Public Use
  Company Number: ZA-VIIV HEALTHCARE LIMITED-B0892239A

PATIENT
  Age: 33 Year
  Sex: Female
  Weight: 80 kg

DRUGS (7)
  1. COMBIVIR [Suspect]
     Indication: HIV INFECTION
     Route: 048
     Dates: start: 20130308
  2. LOPINAVIR + RITONAVIR [Suspect]
     Indication: HIV INFECTION
     Route: 048
     Dates: start: 20130308
  3. PREGAMAL [Concomitant]
     Indication: SUPPLEMENTATION THERAPY
     Route: 048
  4. CALCIUM [Concomitant]
     Indication: SUPPLEMENTATION THERAPY
     Route: 048
  5. ISONIAZID [Concomitant]
     Indication: ANTIBIOTIC PROPHYLAXIS
     Route: 048
  6. PYRIDOXINE [Concomitant]
     Indication: SUPPLEMENTATION THERAPY
     Route: 048
  7. AMOXIL [Concomitant]
     Indication: ANTIBIOTIC THERAPY
     Route: 048

REACTIONS (1)
  - Foetal death [Recovered/Resolved]
